FAERS Safety Report 4451267-5 (Version None)
Quarter: 2004Q3

REPORT INFORMATION
  Report Type: 
  Country: None (occurrence: None)
  Receive Date: 20040913
  Receipt Date: 20040712
  Transmission Date: 20050211
  Serious: No
  Sender: FDA-Public Use
  Company Number: 2004-BP-05570BP

PATIENT
  Age: 82 Year
  Sex: Female

DRUGS (10)
  1. SPIRIVA [Suspect]
     Indication: CHRONIC OBSTRUCTIVE AIRWAYS DISEASE
     Dosage: 18 MCG (18 MCG), IH
     Route: 055
  2. SPIRIVA [Suspect]
     Indication: EMPHYSEMA
     Dosage: 18 MCG (18 MCG), IH
     Route: 055
  3. PREDNISONE [Suspect]
     Indication: CHRONIC OBSTRUCTIVE AIRWAYS DISEASE
     Dosage: 15 MG; 3 YEARS AGO
  4. SINGULAIR [Suspect]
     Indication: HYPERSENSITIVITY
     Dosage: 20 MG (20 MG AT BEDTIME); 3 WEEKS AGO
  5. ADVAIR (SERETIDE MITE) [Concomitant]
  6. XANAX [Concomitant]
  7. MAXZIDE [Concomitant]
  8. VALIUM [Concomitant]
  9. TRAVATON [Concomitant]
  10. BETOPTIC S [Concomitant]

REACTIONS (8)
  - CONTUSION [None]
  - DIFFICULTY IN WALKING [None]
  - FALL [None]
  - FEELING ABNORMAL [None]
  - INTRAOCULAR PRESSURE INCREASED [None]
  - JOINT INJURY [None]
  - OEDEMA PERIPHERAL [None]
  - TREMOR [None]
